FAERS Safety Report 9356190 (Version 2)
Quarter: 2013Q3

REPORT INFORMATION
  Report Type: Spontaneous
  Country: US (occurrence: US)
  Receive Date: 20130619
  Receipt Date: 20130912
  Transmission Date: 20140515
  Serious: Yes (Death, Congenital Anomaly, Other)
  Sender: FDA-Public Use
  Company Number: US-PFIZER INC-2013183478

PATIENT
  Sex: Female

DRUGS (5)
  1. ZOLOFT [Suspect]
     Dosage: UNK
     Route: 064
     Dates: start: 20101017, end: 20101217
  2. PRENATAL VITAMINS [Concomitant]
     Dosage: UNK
     Route: 064
  3. AMOXICILLIN [Concomitant]
     Dosage: UNK
     Route: 064
  4. TYLENOL PM [Concomitant]
     Dosage: UNK
     Route: 064
  5. HYDROCAP/APAP [Concomitant]
     Dosage: UNK
     Route: 064

REACTIONS (6)
  - Foetal exposure during pregnancy [Fatal]
  - Cleft lip [Fatal]
  - Cleft palate [Fatal]
  - Polydactyly [Fatal]
  - Congenital anomaly [Fatal]
  - Premature baby [Unknown]
